FAERS Safety Report 24217374 (Version 1)
Quarter: 2024Q3

REPORT INFORMATION
  Report Type: Spontaneous
  Country: GB (occurrence: GB)
  Receive Date: 20240816
  Receipt Date: 20240816
  Transmission Date: 20241017
  Serious: Yes (Other)
  Sender: SANDOZ
  Company Number: None

PATIENT
  Age: 81 Year
  Sex: Female
  Weight: 65 kg

DRUGS (9)
  1. ATORVASTATIN [Suspect]
     Active Substance: ATORVASTATIN
     Indication: Ill-defined disorder
     Dosage: 20 MG, QD
     Route: 065
     Dates: start: 20240424
  2. Adcal [Concomitant]
     Indication: Ill-defined disorder
     Dosage: TAKE ONE TABLET TWICE DAILY
     Route: 065
     Dates: start: 20240424
  3. ALENDRONIC ACID [Concomitant]
     Active Substance: ALENDRONIC ACID
     Indication: Ill-defined disorder
     Dosage: TAKE ONE TABLET ONCE WEEKLY WITH A FULL GLASS O..
     Route: 065
     Dates: start: 20240814
  4. Clinitas [Concomitant]
     Indication: Ill-defined disorder
     Dosage: INSTIL ONE DROP INTO THE RIGHT EYE WHEN NEEDED
     Route: 047
     Dates: start: 20240424
  5. CODEINE PHOSPHATE [Concomitant]
     Active Substance: CODEINE PHOSPHATE
     Indication: Ill-defined disorder
     Dosage: TAKE ONE TABLET UP TO FOUR TIMES DAILY WHEN NEEDED LEAVING AT LEAST 4 HOURS BETWEEN DOSES
     Route: 065
     Dates: start: 20240726, end: 20240809
  6. LANSOPRAZOLE [Concomitant]
     Active Substance: LANSOPRAZOLE
     Indication: Ill-defined disorder
     Dosage: TAKE ONE CAPSULE EACH MORNING TO PROTECT STOMAC..
     Route: 065
     Dates: start: 20240424
  7. MEBEVERINE HYDROCHLORIDE [Concomitant]
     Active Substance: MEBEVERINE HYDROCHLORIDE
     Indication: Ill-defined disorder
     Dosage: TAKE ONE TABLET THREE TIMES DAILY
     Route: 065
     Dates: start: 20240424
  8. PREDNISOLONE [Concomitant]
     Active Substance: PREDNISOLONE
     Indication: Ill-defined disorder
     Dosage: TAKE FOUR TABLETS (20MG) EACH MORNING
     Route: 065
     Dates: start: 20240424
  9. PYRIDOSTIGMINE BROMIDE [Concomitant]
     Active Substance: PYRIDOSTIGMINE BROMIDE
     Indication: Ill-defined disorder
     Dosage: TAKE ONE TABLET (60MG) THREE TIMES DAILY (7AM, ...
     Route: 065
     Dates: start: 20240424

REACTIONS (1)
  - Myasthenia gravis [Recovering/Resolving]
